FAERS Safety Report 17622222 (Version 1)
Quarter: 2020Q2

REPORT INFORMATION
  Report Type: Spontaneous
  Country: US (occurrence: US)
  Receive Date: 20200403
  Receipt Date: 20200403
  Transmission Date: 20200713
  Serious: No
  Sender: FDA-Public Use
  Company Number: None

PATIENT
  Age: 77 Year
  Sex: Male
  Weight: 91.8 kg

DRUGS (7)
  1. AMITRIPTYLINE [Concomitant]
     Active Substance: AMITRIPTYLINE
  2. ATORVASTATIN [Concomitant]
     Active Substance: ATORVASTATIN
  3. TAMSULOSIN 0.4MG [Concomitant]
     Active Substance: TAMSULOSIN
  4. PERPHENAZINE. [Concomitant]
     Active Substance: PERPHENAZINE
  5. DUTASTERIDE. [Suspect]
     Active Substance: DUTASTERIDE
     Indication: HYPERTONIC BLADDER
     Route: 048
     Dates: start: 20200101
  6. SYNTHROID [Concomitant]
     Active Substance: LEVOTHYROXINE SODIUM
  7. CALCIUM W/ VITAMIN D [Concomitant]

REACTIONS (4)
  - Diarrhoea [None]
  - Flatulence [None]
  - Constipation [None]
  - Bowel movement irregularity [None]

NARRATIVE: CASE EVENT DATE: 20200215
